FAERS Safety Report 17030500 (Version 1)
Quarter: 2019Q4

REPORT INFORMATION
  Report Type: Spontaneous
  Country: CA (occurrence: CA)
  Receive Date: 20191114
  Receipt Date: 20191114
  Transmission Date: 20200122
  Serious: Yes (Other)
  Sender: FDA-Public Use
  Company Number: CA-PFIZER INC-2019488149

PATIENT
  Sex: Female
  Weight: 69 kg

DRUGS (1)
  1. IRINOTECAN HCL [Suspect]
     Active Substance: IRINOTECAN HYDROCHLORIDE
     Dosage: 250 MG, UNK
     Route: 042

REACTIONS (3)
  - Speech disorder [Recovered/Resolved]
  - Blood pressure decreased [Recovered/Resolved]
  - Tongue disorder [Recovered/Resolved]
